FAERS Safety Report 8653845 (Version 3)
Quarter: 2012Q4

REPORT INFORMATION
  Report Type: 
  Country: US (occurrence: US)
  Receive Date: 20120709
  Receipt Date: 20120905
  Transmission Date: 20130627
  Serious: Yes (Other)
  Sender: FDA-Public Use
  Company Number: PHEH2012US013171

PATIENT

DRUGS (1)
  1. RECLAST [Suspect]
     Dosage: 5 mg/100 ml
     Route: 042

REACTIONS (2)
  - Paralysis [Unknown]
  - Eye inflammation [Unknown]
